FAERS Safety Report 5868958-1 (Version None)
Quarter: 2008Q3

REPORT INFORMATION
  Report Type: 
  Country: None (occurrence: None)
  Receive Date: 20080902
  Receipt Date: 20080902
  Transmission Date: 20090109
  Serious: Yes (Life-Threatening, Hospitalization)
  Sender: FDA-Public Use
  Company Number: None

PATIENT
  Age: 67 Year
  Sex: Male
  Weight: 106.5953 kg

DRUGS (1)
  1. DEPAKOTE [Suspect]
     Indication: BIPOLAR DISORDER
     Dosage: 1000 MG TAB AT BEDTIME PO
     Route: 048
     Dates: start: 19990401, end: 20080303

REACTIONS (13)
  - BLOOD GLUCOSE INCREASED [None]
  - FAECAL INCONTINENCE [None]
  - FEELING ABNORMAL [None]
  - GASTROENTERITIS VIRAL [None]
  - HAEMATEMESIS [None]
  - HYPERTENSION [None]
  - INCORRECT DOSE ADMINISTERED [None]
  - PANCREATIC PSEUDOCYST [None]
  - PANCREATITIS [None]
  - PSEUDOCYST [None]
  - SUICIDAL IDEATION [None]
  - ULCER [None]
  - URINARY INCONTINENCE [None]
